FAERS Safety Report 8933268 (Version 1)
Quarter: 2012Q4

REPORT INFORMATION
  Report Type: 
  Country: MX (occurrence: MX)
  Receive Date: 20121129
  Receipt Date: 20121129
  Transmission Date: 20130627
  Serious: Yes (Other)
  Sender: FDA-Public Use
  Company Number: PHHY2012MX108147

PATIENT
  Age: 66 Year
  Sex: Male

DRUGS (6)
  1. TRILEPTAL [Suspect]
     Indication: MUSCLE SPASMS
     Dosage: 1 DF, 1 tablet daily
     Route: 048
  2. CRESTOR [Concomitant]
     Indication: BLOOD CHOLESTEROL
     Dosage: 1 DF, daily
     Dates: start: 2010
  3. TRAYENTA [Concomitant]
     Indication: BLOOD GLUCOSE
     Dosage: 1 DF, daily
  4. METFORMIN [Concomitant]
     Indication: BLOOD GLUCOSE
     Dosage: 3 DF, daily
     Route: 048
     Dates: start: 2010
  5. ATACAND [Concomitant]
     Indication: BLOOD PRESSURE
     Dosage: 1 DF, daily
     Dates: start: 2011
  6. DIPRES [Concomitant]
     Indication: BLOOD PRESSURE
     Dosage: 2 DF, UNK
     Dates: start: 2011

REACTIONS (2)
  - Angina pectoris [Recovered/Resolved]
  - Coronary artery occlusion [Recovered/Resolved]
